FAERS Safety Report 20393584 (Version 1)
Quarter: 2022Q1

REPORT INFORMATION
  Report Type: Spontaneous
  Country: NZ (occurrence: None)
  Receive Date: 20220128
  Receipt Date: 20220128
  Transmission Date: 20220423
  Serious: Yes (Other)
  Sender: FDA-Public Use
  Company Number: NZ-ROCHE-3007573

PATIENT
  Age: 66 Year
  Sex: Male
  Weight: 76.4 kg

DRUGS (5)
  1. PRALSETINIB [Suspect]
     Active Substance: PRALSETINIB
     Indication: Non-small cell lung cancer
     Route: 048
     Dates: start: 20211225, end: 20220119
  2. SULFAMETHOXAZOLE AND TRIMETHOPRIM [Concomitant]
     Active Substance: SULFAMETHOXAZOLE\TRIMETHOPRIM
     Route: 048
     Dates: start: 20211201, end: 20211201
  3. DEXAMETHASONE [Concomitant]
     Active Substance: DEXAMETHASONE
     Dosage: REDUCING BY 1MG/WEEK SINCE 29/DEC/21 4MG
     Route: 048
     Dates: start: 20211201
  4. MORPHINE [Concomitant]
     Active Substance: MORPHINE
     Dosage: 1MG/ML ORAL LIQUID 5MG PO Q4H PRN.
     Route: 048
  5. ACETAMINOPHEN [Concomitant]
     Active Substance: ACETAMINOPHEN
     Dosage: 250MG/5ML ORAL LIQUID 1G PO QID PRN
     Route: 048

REACTIONS (4)
  - Pulmonary embolism [Unknown]
  - Cough [Unknown]
  - Dyspnoea [Unknown]
  - Hypoxia [Unknown]

NARRATIVE: CASE EVENT DATE: 20220119
